FAERS Safety Report 7809235-9 (Version None)
Quarter: 2011Q4

REPORT INFORMATION
  Report Type: 
  Country: None (occurrence: None)
  Receive Date: 20111006
  Receipt Date: 20110930
  Transmission Date: 20120403
  Serious: Yes (Hospitalization)
  Sender: FDA-Public Use
  Company Number: KAD201110-000023

PATIENT
  Age: 37 Year
  Sex: Female

DRUGS (5)
  1. SULFASALAZINE [Concomitant]
  2. PREDNISONE [Concomitant]
  3. AMPHOTERICIN B [Suspect]
     Indication: CRYPTOCOCCOSIS
  4. MESALAMINE [Suspect]
     Indication: COLITIS ULCERATIVE
  5. FLUCONAZOLE [Suspect]
     Indication: CRYPTOCOCCOSIS

REACTIONS (7)
  - CRYPTOCOCCUS TEST POSITIVE [None]
  - LACUNAR INFARCTION [None]
  - COLITIS ULCERATIVE [None]
  - EMPTY SELLA SYNDROME [None]
  - DIPLOPIA [None]
  - DISEASE RECURRENCE [None]
  - DRUG EFFECT DECREASED [None]
